FAERS Safety Report 10315043 (Version 2)
Quarter: 2014Q4

REPORT INFORMATION
  Report Type: Spontaneous
  Country: JP (occurrence: JP)
  Receive Date: 20140718
  Receipt Date: 20141002
  Transmission Date: 20150528
  Serious: Yes (Hospitalization, Other)
  Sender: FDA-Public Use
  Company Number: PHHY2014JP086250

PATIENT
  Age: 59 Year
  Sex: Female

DRUGS (7)
  1. TAXOTERE [Suspect]
     Active Substance: DOCETAXEL
     Indication: BREAST CANCER
     Route: 041
     Dates: start: 201306, end: 201406
  2. CYCLOPHOSPHAMIDE. [Suspect]
     Active Substance: CYCLOPHOSPHAMIDE
     Indication: BREAST CANCER
     Dates: start: 201306, end: 201406
  3. MORPHINE [Suspect]
     Active Substance: MORPHINE
     Route: 058
  4. CAPECITABINE. [Suspect]
     Active Substance: CAPECITABINE
     Route: 041
     Dates: start: 201303, end: 201310
  5. TOREMIFENE [Concomitant]
     Active Substance: TOREMIFENE
  6. ZOLEDRONATE [Suspect]
     Active Substance: ZOLEDRONIC ACID
     Indication: BREAST CANCER STAGE IV
     Dosage: 4 MG,
     Dates: start: 201206
  7. ERIBULIN [Suspect]
     Active Substance: ERIBULIN
     Dates: start: 201303, end: 201310

REACTIONS (10)
  - Metastases to lymph nodes [Unknown]
  - Haemorrhage [Unknown]
  - Pain [Unknown]
  - Malignant neoplasm progression [Unknown]
  - Metastases to skin [Unknown]
  - Interstitial lung disease [Recovered/Resolved]
  - Skin exfoliation [Unknown]
  - Malaise [Unknown]
  - Bone marrow failure [Unknown]
  - Breast cancer [Unknown]

NARRATIVE: CASE EVENT DATE: 201206
